FAERS Safety Report 10277859 (Version 1)
Quarter: 2014Q3

REPORT INFORMATION
  Report Type: Report from Study
  Country: US (occurrence: US)
  Receive Date: 20140704
  Receipt Date: 20140704
  Transmission Date: 20150326
  Serious: Yes (Hospitalization)
  Sender: FDA-Public Use
  Company Number: US-BIOGENIDEC-2014BI063811

PATIENT
  Age: 71 Year
  Sex: Female

DRUGS (1)
  1. AVONEX [Suspect]
     Active Substance: INTERFERON BETA-1A
     Indication: MULTIPLE SCLEROSIS
     Route: 030

REACTIONS (11)
  - Arthralgia [Not Recovered/Not Resolved]
  - Exostosis [Not Recovered/Not Resolved]
  - Speech disorder [Recovered/Resolved]
  - Peripheral swelling [Not Recovered/Not Resolved]
  - Depression [Recovered/Resolved]
  - Fall [Recovered/Resolved]
  - Fatigue [Not Recovered/Not Resolved]
  - Hypoaesthesia [Not Recovered/Not Resolved]
  - Memory impairment [Not Recovered/Not Resolved]
  - Abasia [Not Recovered/Not Resolved]
  - Stress [Not Recovered/Not Resolved]

NARRATIVE: CASE EVENT DATE: 20140303
